FAERS Safety Report 6407914-1 (Version None)
Quarter: 2009Q4

REPORT INFORMATION
  Report Type: 
  Country: None (occurrence: None)
  Receive Date: 20091016
  Receipt Date: 20091009
  Transmission Date: 20100525
  Serious: Yes (Death)
  Sender: FDA-Public Use
  Company Number: 2009SP030189

PATIENT
  Age: 72 Year
  Sex: Female
  Weight: 52 kg

DRUGS (1)
  1. TEMODAL [Suspect]
     Indication: GLIOBLASTOMA MULTIFORME
     Dosage: PO
     Route: 048
     Dates: start: 20081101, end: 20090913

REACTIONS (5)
  - ACUTE RESPIRATORY FAILURE [None]
  - DIARRHOEA [None]
  - GLIOBLASTOMA MULTIFORME [None]
  - PNEUMONIA ASPIRATION [None]
  - VOMITING [None]
